FAERS Safety Report 8248520-6 (Version None)
Quarter: 2012Q1

REPORT INFORMATION
  Report Type: 
  Country: None (occurrence: None)
  Receive Date: 20120330
  Receipt Date: 20120328
  Transmission Date: 20120608
  Serious: Yes (Hospitalization)
  Sender: FDA-Public Use
  Company Number: US-MERCK-1201USA00749

PATIENT
  Age: 43 Year
  Sex: Female

DRUGS (7)
  1. FOSAMAX [Suspect]
     Indication: OSTEOPENIA
     Route: 048
     Dates: start: 20040101, end: 20080601
  2. ADVAIR DISKUS 100/50 [Concomitant]
     Indication: CHRONIC OBSTRUCTIVE PULMONARY DISEASE
     Route: 065
     Dates: start: 20060101
  3. LOVENOX [Concomitant]
     Indication: CHRONIC OBSTRUCTIVE PULMONARY DISEASE
     Route: 065
     Dates: start: 19990101
  4. NEXIUM [Concomitant]
     Route: 065
     Dates: start: 20000101
  5. HORMONES (UNSPECIFIED) [Concomitant]
     Route: 065
     Dates: start: 20050101
  6. ALBUTEROL [Concomitant]
     Route: 065
     Dates: start: 20060101
  7. FOSAMAX [Suspect]
     Route: 048
     Dates: start: 20080101, end: 20100601

REACTIONS (6)
  - DENTAL CARIES [None]
  - JAW DISORDER [None]
  - SINUS DISORDER [None]
  - TOOTH INFECTION [None]
  - TOOTH ABSCESS [None]
  - OSTEONECROSIS OF JAW [None]
